FAERS Safety Report 4443936-8 (Version None)
Quarter: 2004Q3

REPORT INFORMATION
  Report Type: 
  Country: None (occurrence: None)
  Receive Date: 20040908
  Receipt Date: 20040903
  Transmission Date: 20050211
  Serious: Yes (Hospitalization)
  Sender: FDA-Public Use
  Company Number: PHBS2004GR11698

PATIENT
  Age: 52 Year
  Sex: Male

DRUGS (2)
  1. VOLTAREN [Suspect]
     Indication: BACK PAIN
     Dosage: 175 MG/DAY
     Route: 048
     Dates: start: 20040821, end: 20040824
  2. NORGESIC [Concomitant]
     Indication: BACK PAIN
     Route: 048
     Dates: start: 20040821, end: 20040824

REACTIONS (2)
  - DIPLOPIA [None]
  - HEADACHE [None]
